FAERS Safety Report 19401452 (Version 4)
Quarter: 2024Q3

REPORT INFORMATION
  Report Type: Spontaneous
  Country: GR (occurrence: GR)
  Receive Date: 20210611
  Receipt Date: 20240924
  Transmission Date: 20241017
  Serious: Yes (Other)
  Sender: AMGEN
  Company Number: GR-002147023-PHHY2017GR180759

PATIENT
  Age: 62 Year
  Sex: Female

DRUGS (61)
  1. TRASTUZUMAB [Suspect]
     Active Substance: TRASTUZUMAB
     Indication: Breast cancer metastatic
     Dosage: 1-EVERY CYCLE, COMBINATION WITH FULVESTRANT
     Route: 065
     Dates: start: 2009
  2. TRASTUZUMAB [Suspect]
     Active Substance: TRASTUZUMAB
     Indication: Recurrent cancer
     Dosage: 1-EVERY CYCLE, COMBINATION WITH LIPOSOMAL DOXORUBICIN HCL
     Route: 065
     Dates: start: 2009
  3. TRASTUZUMAB [Suspect]
     Active Substance: TRASTUZUMAB
     Dosage: 1-EVERY CYCLE, COMBINATION WITH ERIBULIN
     Route: 065
     Dates: start: 2009
  4. TRASTUZUMAB [Suspect]
     Active Substance: TRASTUZUMAB
     Dosage: 1-EVERY CYCLE, COMBINATION WITH EXEMESTANE AND EVEROLIMUS, 1-EVERY CYCLE
     Route: 065
     Dates: start: 2009
  5. TRASTUZUMAB [Suspect]
     Active Substance: TRASTUZUMAB
     Dosage: 1-EVERY CYCLE, COMBINATION WITH TAMOXIFEN
     Route: 065
     Dates: start: 2009
  6. TRASTUZUMAB [Suspect]
     Active Substance: TRASTUZUMAB
     Dosage: 1-EVERY CYCLE, COMBINATION WITH CAPECITABINE
     Route: 065
     Dates: start: 2009
  7. TRASTUZUMAB [Suspect]
     Active Substance: TRASTUZUMAB
     Dosage: 1-EVERY CYCLE, COMBINATION WITH GEMCITABINE AND CARBOPLATIN
     Route: 065
     Dates: start: 2009
  8. TRASTUZUMAB [Suspect]
     Active Substance: TRASTUZUMAB
     Dosage: 1-EVERY CYCLE, REGIMEN#1
     Route: 065
     Dates: start: 2009
  9. TRASTUZUMAB [Suspect]
     Active Substance: TRASTUZUMAB
     Dosage: 1 DF, CYCLICAL, COMBINATION WITH ERIBULIN
     Route: 065
  10. TRASTUZUMAB [Suspect]
     Active Substance: TRASTUZUMAB
     Dosage: 1 DF, CYCLICAL, COMBINATION WITH CAPECITABINE
     Route: 065
  11. TRASTUZUMAB [Suspect]
     Active Substance: TRASTUZUMAB
     Dosage: 1 DF, QD
     Route: 065
  12. TRASTUZUMAB [Suspect]
     Active Substance: TRASTUZUMAB
     Dosage: 1 DOSAGE FORM, CYCLIC (1 - EVERY CYCLE, REGIMEN#1)
     Route: 065
     Dates: start: 2009
  13. EVEROLIMUS [Suspect]
     Active Substance: EVEROLIMUS
     Indication: Prophylaxis against transplant rejection
     Dosage: 1 - EVERY CYCLE, REGIMEN#1, COMBINATION WITH TRASTZUMAB AND EXEMESTANE
     Route: 065
     Dates: start: 2009
  14. EVEROLIMUS [Suspect]
     Active Substance: EVEROLIMUS
     Indication: Breast cancer metastatic
     Dosage: 1 DF, QD
     Route: 065
     Dates: start: 2009
  15. EVEROLIMUS [Suspect]
     Active Substance: EVEROLIMUS
     Indication: Recurrent cancer
     Dosage: 1 DOSAGE FORM, CYCLIC (1 - EVERY CYCLE, REGIMEN#1, COMBINATION WITH TRASTZUMAB AND EXEMESTANE)
     Route: 065
     Dates: start: 2009
  16. EVEROLIMUS [Suspect]
     Active Substance: EVEROLIMUS
     Indication: Breast cancer
  17. METHOTREXATE SODIUM [Suspect]
     Active Substance: METHOTREXATE SODIUM
     Indication: Breast cancer metastatic
     Dosage: UNK, (REGIMEN #1)
     Route: 065
     Dates: start: 2006
  18. METHOTREXATE SODIUM [Suspect]
     Active Substance: METHOTREXATE SODIUM
     Dosage: 1 DF, QD
     Route: 065
     Dates: start: 2006
  19. METHOTREXATE SODIUM [Suspect]
     Active Substance: METHOTREXATE SODIUM
     Dosage: 1 DF, QD
     Route: 065
     Dates: start: 2009
  20. DOXORUBICIN HYDROCHLORIDE [Suspect]
     Active Substance: DOXORUBICIN HYDROCHLORIDE
     Indication: Breast cancer metastatic
     Dosage: 1 - EVERY CYCLE, REGIMEN#1, COMBINATION WITH TRASTUZUMAB
     Route: 065
     Dates: start: 2009
  21. DOXORUBICIN HYDROCHLORIDE [Suspect]
     Active Substance: DOXORUBICIN HYDROCHLORIDE
     Indication: Recurrent cancer
     Dosage: 1 DF, CYCLICAL
     Route: 065
     Dates: start: 2009
  22. DOXORUBICIN HYDROCHLORIDE [Suspect]
     Active Substance: DOXORUBICIN HYDROCHLORIDE
     Dosage: 1 DOSAGE FORM, QD (1 - EVERY CYCLE, REGIMEN#1, COMBINATION WITH TRASTUZUMAB)
     Route: 065
     Dates: start: 2009
  23. GEMCITABINE HYDROCHLORIDE [Suspect]
     Active Substance: GEMCITABINE HYDROCHLORIDE
     Indication: Recurrent cancer
     Dosage: 1 DF CYCLICAL
     Route: 065
     Dates: start: 2009
  24. GEMCITABINE HYDROCHLORIDE [Suspect]
     Active Substance: GEMCITABINE HYDROCHLORIDE
     Indication: Breast cancer metastatic
     Dosage: 1 DF, QD
     Route: 065
     Dates: start: 2009
  25. GEMCITABINE HYDROCHLORIDE [Suspect]
     Active Substance: GEMCITABINE HYDROCHLORIDE
     Dosage: 1 - EVERY CYCLE, COMBINATION WITH TRASTUZUMAB AND CARBOPLATIN
     Route: 065
     Dates: start: 2009
  26. GEMCITABINE HYDROCHLORIDE [Suspect]
     Active Substance: GEMCITABINE HYDROCHLORIDE
     Dosage: 1 DOSAGE FORM, CYCLIC (1 - EVERY CYCLE, COMBINATION WITH TRASTUZUMAB AND CARBOPLATIN)
     Route: 065
     Dates: start: 2009
  27. FLUOROURACIL [Suspect]
     Active Substance: FLUOROURACIL
     Indication: Breast cancer metastatic
     Dosage: 1-EVERY CYCLE, REGIMEN#1
     Route: 065
     Dates: start: 2006
  28. FLUOROURACIL [Suspect]
     Active Substance: FLUOROURACIL
     Dosage: 1 DOSAGE FORM, CYCLIC (1-EVERY CYCLE, REGIMEN#1)
     Route: 065
     Dates: start: 2006
  29. EPIRUBICIN HYDROCHLORIDE [Suspect]
     Active Substance: EPIRUBICIN HYDROCHLORIDE
     Indication: Recurrent cancer
     Dosage: 1 DOSAGE FORM, CYCLIC (1 - EVERY CYCLE, REGIMEN#1)
     Route: 065
     Dates: start: 2006
  30. EPIRUBICIN HYDROCHLORIDE [Suspect]
     Active Substance: EPIRUBICIN HYDROCHLORIDE
     Indication: Breast cancer metastatic
  31. EPIRUBICIN [Suspect]
     Active Substance: EPIRUBICIN
     Indication: Breast cancer metastatic
     Dosage: UNK
     Route: 065
     Dates: start: 2009
  32. METHOTREXATE [Suspect]
     Active Substance: METHOTREXATE
     Indication: Breast cancer metastatic
     Dosage: 1 DF, QD
     Route: 065
     Dates: start: 2006
  33. DOXORUBICIN [Suspect]
     Active Substance: DOXORUBICIN
     Indication: Breast cancer metastatic
     Dosage: UNK
     Route: 065
     Dates: start: 2009
  34. ADO-TRASTUZUMAB EMTANSINE [Suspect]
     Active Substance: ADO-TRASTUZUMAB EMTANSINE
     Indication: Breast cancer metastatic
     Dosage: 1 - EVERY CYCLE, REGIMEN#1
     Route: 065
     Dates: start: 2009
  35. ADO-TRASTUZUMAB EMTANSINE [Suspect]
     Active Substance: ADO-TRASTUZUMAB EMTANSINE
     Indication: Recurrent cancer
  36. CARBOPLATIN [Suspect]
     Active Substance: CARBOPLATIN
     Indication: Recurrent cancer
     Dosage: 1 - EVERY CYCLE, COMBINATION WITH TRASTUZUMAB AND GEMCITABINE
     Route: 065
     Dates: start: 2009
  37. CARBOPLATIN [Suspect]
     Active Substance: CARBOPLATIN
     Indication: Breast cancer metastatic
     Dosage: CYCLICAL
     Route: 065
     Dates: start: 2009
  38. CARBOPLATIN [Suspect]
     Active Substance: CARBOPLATIN
     Dosage: 1 DOSAGE FORM, CYCLIC (1 - EVERY CYCLE, COMBINATION WITH TRASTUZUMAB AND GEMCITABINE)
     Route: 065
     Dates: start: 2009
  39. ERIBULIN [Suspect]
     Active Substance: ERIBULIN
     Indication: Breast cancer metastatic
     Dosage: REGIMEN#1, COMBINATION WITH TRASTUZUMAB, 1 - EVERY CYCLE
     Route: 042
     Dates: start: 2009
  40. ERIBULIN [Suspect]
     Active Substance: ERIBULIN
     Indication: Recurrent cancer
     Dosage: 1 DF CYCLICAL
     Route: 065
     Dates: start: 2009
  41. ERIBULIN [Suspect]
     Active Substance: ERIBULIN
     Dosage: 1 DF, QD
     Route: 065
     Dates: start: 2009
  42. ERIBULIN [Suspect]
     Active Substance: ERIBULIN
     Dosage: 1 DOSAGE FORM, CYCLIC (REGIMEN#1, COMBINATION WITH TRASTUZUMAB, 1 - EVERY CYCLE)
     Route: 065
     Dates: start: 2009
  43. FULVESTRANT [Suspect]
     Active Substance: FULVESTRANT
     Indication: Breast cancer metastatic
     Dosage: 1 DF CYCLICAL
     Route: 030
     Dates: start: 2009
  44. FULVESTRANT [Suspect]
     Active Substance: FULVESTRANT
     Indication: Recurrent cancer
     Dosage: 1 - EVERY CYCLE, REGIMEN#1, COMBINATION WITH TRASTUZUMAB
     Route: 030
     Dates: start: 2009
  45. FULVESTRANT [Suspect]
     Active Substance: FULVESTRANT
     Indication: Metastatic malignant melanoma
     Dosage: 1 DOSAGE FORM, CYCLIC (1 - EVERY CYCLE, REGIMEN#1, COMBINATION WITH TRASTUZUMAB)
     Route: 030
     Dates: start: 2009
  46. TAMOXIFEN CITRATE [Suspect]
     Active Substance: TAMOXIFEN CITRATE
     Indication: Breast cancer metastatic
     Dosage: 1 DOSAGE FORM, CYCLIC (1-EVERY CYCLE, REGIMEN#1, COMBINATION WITH TRASTUZUMAB)
     Route: 048
     Dates: start: 2009
  47. TAMOXIFEN CITRATE [Suspect]
     Active Substance: TAMOXIFEN CITRATE
     Indication: Recurrent cancer
  48. EXEMESTANE [Suspect]
     Active Substance: EXEMESTANE
     Indication: Breast cancer metastatic
     Dosage: 1 DF, CYCLIC (COMBINATION WITH TRASTZUMAB AND EVEROLIMUS, 1- EVERY CYCLE)
     Route: 065
     Dates: start: 2009
  49. EXEMESTANE [Suspect]
     Active Substance: EXEMESTANE
     Indication: Recurrent cancer
  50. DOCETAXEL [Suspect]
     Active Substance: DOCETAXEL\DOCETAXEL ANHYDROUS
     Indication: Recurrent cancer
     Dosage: 1 DF, CYCLIC (1 - EVERY CYCLE, REGIMEN#1)
     Route: 065
  51. DOCETAXEL [Suspect]
     Active Substance: DOCETAXEL\DOCETAXEL ANHYDROUS
     Indication: Breast cancer metastatic
  52. LAPATINIB [Suspect]
     Active Substance: LAPATINIB
     Indication: Breast cancer metastatic
     Dosage: 1 DOSAGE FORM, CYCLIC (1 - EVERY CYCLE, REGIMEN#1, COMBINATION WITH CAPECITABINE)
     Route: 065
     Dates: start: 2009
  53. LAPATINIB [Suspect]
     Active Substance: LAPATINIB
     Indication: Recurrent cancer
  54. CAPECITABINE [Suspect]
     Active Substance: CAPECITABINE
     Indication: Breast cancer metastatic
     Dosage: 1 DOSAGE FORM, CYCLIC (REGIMEN#1, COMBINATION WITH LAPATINIB, 1 - EVERY CYCLE)
     Route: 065
     Dates: start: 2009
  55. CAPECITABINE [Suspect]
     Active Substance: CAPECITABINE
     Indication: Recurrent cancer
  56. PACLITAXEL [Suspect]
     Active Substance: PACLITAXEL
     Indication: Breast cancer metastatic
     Dosage: 1 DF, CYCLIC (1 - EVERY CYCLE, REGIMEN#1)
     Route: 065
     Dates: start: 2006
  57. CYCLOPHOSPHAMIDE [Suspect]
     Active Substance: CYCLOPHOSPHAMIDE
     Indication: Breast cancer metastatic
     Dosage: 1 DOSAGE FORM, CYCLIC (1 - EVERY CYCLE REGIMEN#1)
     Route: 065
  58. EPIRUBICIN HYDROCHLORIDE [Suspect]
     Active Substance: EPIRUBICIN HYDROCHLORIDE
     Indication: Breast cancer metastatic
     Dosage: 1 DOSAGE FORM, CYCLIC (1 - EVERY CYCLE, REGIMEN#1)
     Route: 065
     Dates: start: 2006
  59. VINORELBINE [Suspect]
     Active Substance: VINORELBINE TARTRATE
     Indication: Recurrent cancer
     Dosage: 1 DOSAGE FORM, CYCLIC (1-EVERY CYCLE, REGIMEN#1, COMBINATION WITH TRASTUZUMAB)
     Route: 065
     Dates: start: 2009
  60. VINORELBINE [Suspect]
     Active Substance: VINORELBINE TARTRATE
     Indication: Breast cancer metastatic
  61. CYCLOPHOSPHAMIDE [Suspect]
     Active Substance: CYCLOPHOSPHAMIDE
     Indication: Breast cancer metastatic
     Dosage: UNK
     Route: 065

REACTIONS (8)
  - Skin mass [Unknown]
  - Malignant neoplasm progression [Unknown]
  - Metastases to bone [Unknown]
  - Recurrent cancer [Unknown]
  - Metastases to lymph nodes [Unknown]
  - Metastases to lung [Unknown]
  - Hormone receptor positive breast cancer [Unknown]
  - Metastases to skin [Unknown]

NARRATIVE: CASE EVENT DATE: 20090101
